FAERS Safety Report 24339181 (Version 1)
Quarter: 2024Q3

REPORT INFORMATION
  Report Type: Spontaneous
  Country: US (occurrence: None)
  Receive Date: 20240918
  Receipt Date: 20240918
  Transmission Date: 20241017
  Serious: Yes (Other)
  Sender: Public
  Company Number: None

PATIENT
  Age: 53 Year
  Sex: Male
  Weight: 96.75 kg

DRUGS (1)
  1. FINASTERIDE [Suspect]
     Active Substance: FINASTERIDE
     Indication: Alopecia
     Dates: start: 20200501, end: 20240701

REACTIONS (4)
  - Anxiety [None]
  - Adjustment disorder with depressed mood [None]
  - Panic reaction [None]
  - Fear [None]

NARRATIVE: CASE EVENT DATE: 20240701
